FAERS Safety Report 4940221-2 (Version None)
Quarter: 2006Q1

REPORT INFORMATION
  Report Type: 
  Country: None (occurrence: None)
  Receive Date: 20060310
  Receipt Date: 20050630
  Transmission Date: 20060701
  Serious: Yes (Hospitalization, Disabling)
  Sender: FDA-Public Use
  Company Number: US-MERCK-0507USA00185

PATIENT
  Age: 55 Year
  Sex: Female
  Weight: 95 kg

DRUGS (10)
  1. VIOXX [Suspect]
     Route: 048
     Dates: start: 20001001, end: 20040901
  2. ATIVAN [Concomitant]
     Route: 065
  3. REGLAN [Concomitant]
     Route: 065
  4. PROZAC [Concomitant]
     Route: 065
  5. SYNTHROID [Concomitant]
     Route: 065
  6. ESTRADIOL [Concomitant]
     Route: 065
  7. PREVACID [Concomitant]
     Route: 065
  8. METOPROLOL [Concomitant]
     Route: 065
  9. ASPIRIN [Concomitant]
     Route: 065
  10. FLONASE [Concomitant]
     Route: 065

REACTIONS (15)
  - AFFECTIVE DISORDER [None]
  - ANXIETY [None]
  - ARTERIOSCLEROSIS [None]
  - ARTHRALGIA [None]
  - BLOOD GLUCOSE INCREASED [None]
  - BRONCHITIS [None]
  - CEREBRAL INFARCTION [None]
  - CEREBROVASCULAR ACCIDENT [None]
  - DEPRESSION [None]
  - ECCHYMOSIS [None]
  - FALL [None]
  - HYPERTENSION [None]
  - SLEEP DISORDER [None]
  - TRANSIENT ISCHAEMIC ATTACK [None]
  - VERTIGO [None]
